FAERS Safety Report 7797787-7 (Version None)
Quarter: 2011Q4

REPORT INFORMATION
  Report Type: 
  Country: None (occurrence: None)
  Receive Date: 20111005
  Receipt Date: 20110922
  Transmission Date: 20120403
  Serious: Yes (Other)
  Sender: FDA-Public Use
  Company Number: US-JNJFOC-20110909658

PATIENT
  Age: 47 Year
  Sex: Female
  Weight: 95.26 kg

DRUGS (1)
  1. BENGAY ORIGINAL [Suspect]
     Indication: ARTHRALGIA
     Dosage: ONE PATCH ONCE
     Route: 061
     Dates: start: 20110901, end: 20110901

REACTIONS (7)
  - SKIN EXFOLIATION [None]
  - ARTHROPATHY [None]
  - JOINT LOCK [None]
  - ABASIA [None]
  - APPLICATION SITE ERYTHEMA [None]
  - APPLICATION SITE BURN [None]
  - APPLICATION SITE EXFOLIATION [None]
